FAERS Safety Report 4952479-4 (Version None)
Quarter: 2006Q1

REPORT INFORMATION
  Report Type: 
  Country: None (occurrence: None)
  Receive Date: 20060323
  Receipt Date: 20060315
  Transmission Date: 20060701
  Serious: Yes (Death, Disabling, Other)
  Sender: FDA-Public Use
  Company Number: US-MERCK-0603USA02763

PATIENT
  Age: 43 Year
  Sex: Male

DRUGS (1)
  1. VIOXX [Suspect]
     Indication: PAIN
     Route: 048
     Dates: start: 20030601, end: 20040101

REACTIONS (5)
  - CARDIAC DISORDER [None]
  - CEREBROVASCULAR ACCIDENT [None]
  - DEATH [None]
  - LUNG NEOPLASM MALIGNANT [None]
  - MYOCARDIAL INFARCTION [None]
